FAERS Safety Report 6822866-8 (Version None)
Quarter: 2010Q3

REPORT INFORMATION
  Report Type: 
  Country: None (occurrence: None)
  Receive Date: 20100708
  Receipt Date: 20100701
  Transmission Date: 20110219
  Serious: Yes (Death, Hospitalization)
  Sender: FDA-Public Use
  Company Number: US-SHIRE-ALL1-2010-03691

PATIENT

DRUGS (23)
  1. FOSRENOL [Suspect]
     Indication: HYPERPHOSPHATAEMIA
     Dosage: 1000 MG, OTHER (WITH MEALS)
     Route: 048
     Dates: start: 20071003
  2. MANNITOL [Concomitant]
     Indication: PRODUCT USED FOR UNKNOWN INDICATION
     Dosage: 12.5 G, AS REQ'D
     Route: 065
     Dates: start: 20070420
  3. PLAVIX [Concomitant]
     Indication: PRODUCT USED FOR UNKNOWN INDICATION
     Dosage: 75 MG, 1X/DAY:QD
     Route: 048
     Dates: start: 20070520
  4. OMEPRAZOLE [Concomitant]
     Indication: PRODUCT USED FOR UNKNOWN INDICATION
     Dosage: 20 MG, 1X/DAY:QD
     Route: 048
     Dates: start: 20070602
  5. NEURONTIN [Concomitant]
     Indication: PRODUCT USED FOR UNKNOWN INDICATION
     Dosage: 300 MG, 3X/DAY:TID
     Route: 048
     Dates: start: 20070512
  6. CLARITIN                           /00413701/ [Concomitant]
     Indication: PRODUCT USED FOR UNKNOWN INDICATION
     Dosage: 10 MG, 1X/DAY:QD
     Route: 048
     Dates: start: 20070602
  7. COLACE [Concomitant]
     Indication: PRODUCT USED FOR UNKNOWN INDICATION
     Dosage: 200 MG, 3X/DAY:TID (TWO 100 MG. CAPSULES)
     Route: 048
     Dates: start: 20071111
  8. FOLIC ACID [Concomitant]
     Indication: PRODUCT USED FOR UNKNOWN INDICATION
     Dosage: 1 MG, 1X/DAY:QD
     Route: 048
     Dates: start: 20070602
  9. LIPITOR [Concomitant]
     Indication: PRODUCT USED FOR UNKNOWN INDICATION
     Dosage: 40 MG, 1X/DAY:QD
     Route: 048
     Dates: start: 20070602
  10. NASONEX [Concomitant]
     Indication: PRODUCT USED FOR UNKNOWN INDICATION
     Dosage: UNK MG, UNKNOWN
     Route: 045
     Dates: start: 20080912
  11. TRAMADOL [Concomitant]
     Indication: PRODUCT USED FOR UNKNOWN INDICATION
     Dosage: 50 MG, OTHER (EVERY SIX HOURS)
     Route: 048
     Dates: start: 20081015
  12. METOPROLOL [Concomitant]
     Indication: PRODUCT USED FOR UNKNOWN INDICATION
     Dosage: 12.5 MG, OTHER (HALF OF A 25 MG. TAB ON TUESDAY, THURSDAY, SATURDAY AND SUNDAY AT BEDTIME)
     Route: 048
     Dates: start: 20091223
  13. UNSPECIFIED MEDICATION [Concomitant]
     Indication: PRODUCT USED FOR UNKNOWN INDICATION
     Dosage: UNK MG, UNKNOWN
     Route: 065
     Dates: start: 20090602
  14. SENSIPAR [Concomitant]
     Indication: PRODUCT USED FOR UNKNOWN INDICATION
     Dosage: 30 MG, 1X/DAY:QD
     Route: 048
     Dates: start: 20080305
  15. AMBIEN [Concomitant]
     Indication: PRODUCT USED FOR UNKNOWN INDICATION
     Dosage: 10 MG, 1X/DAY:QD
     Route: 048
     Dates: start: 20090307
  16. ASPIRIN [Concomitant]
     Indication: PRODUCT USED FOR UNKNOWN INDICATION
     Dosage: 325 MG, 1X/DAY:QD
     Route: 048
     Dates: start: 20090918
  17. HUMALOG MIX [Concomitant]
     Indication: PRODUCT USED FOR UNKNOWN INDICATION
     Dosage: 30 IU, 1X/DAY:QD (HUMALOG 70/30)
     Route: 058
     Dates: start: 20091014
  18. OXYCODONE HCL [Concomitant]
     Indication: PRODUCT USED FOR UNKNOWN INDICATION
     Dosage: 10 MG, OTHER (TWO 5 MG. TABS EVERY FOUR HRS)
     Route: 048
     Dates: start: 20100106
  19. ZEMPLAR [Concomitant]
     Indication: PRODUCT USED FOR UNKNOWN INDICATION
     Dosage: 5 MG, 1X/DAY:QD
     Route: 048
     Dates: start: 20090507
  20. DULCOLAX [Concomitant]
     Indication: PRODUCT USED FOR UNKNOWN INDICATION
     Dosage: 20 MG, 1X/DAY:QD (TWO 10 MG.)
     Route: 065
     Dates: start: 20100524
  21. EPOETIN [Concomitant]
     Indication: PRODUCT USED FOR UNKNOWN INDICATION
     Dosage: 2000 IU, UNKNOWN
     Route: 065
     Dates: start: 20100505
  22. DRISDOL [Concomitant]
     Indication: PRODUCT USED FOR UNKNOWN INDICATION
     Dosage: 5000 IU, 1X/WEEK
     Route: 048
     Dates: start: 20100407
  23. CELEXA [Concomitant]
     Indication: PRODUCT USED FOR UNKNOWN INDICATION
     Dosage: 20 MG, 1X/DAY:QD
     Route: 048
     Dates: start: 20100405

REACTIONS (4)
  - AMPUTATION [None]
  - CARDIAC ARREST [None]
  - DEATH [None]
  - HYPERCALCAEMIA [None]
